FAERS Safety Report 9024643 (Version 1)
Quarter: 2013Q1

REPORT INFORMATION
  Report Type: Spontaneous
  Country: JP (occurrence: JP)
  Receive Date: 20130120
  Receipt Date: 20130120
  Transmission Date: 20140127
  Serious: Yes (Hospitalization)
  Sender: FDA-Public Use
  Company Number: PHHY2013JP004491

PATIENT
  Sex: Female

DRUGS (1)
  1. CEFTRIAXONE [Suspect]
     Indication: DIABETIC GANGRENE
     Dosage: 2 G, Q48H
     Route: 042

REACTIONS (4)
  - Slow response to stimuli [Recovering/Resolving]
  - Speech disorder [Recovering/Resolving]
  - Eye disorder [Recovering/Resolving]
  - Drug level increased [Recovering/Resolving]
